FAERS Safety Report 7764808-7 (Version None)
Quarter: 2011Q3

REPORT INFORMATION
  Report Type: 
  Country: None (occurrence: None)
  Receive Date: 20110919
  Receipt Date: 20110905
  Transmission Date: 20111222
  Serious: Yes (Death)
  Sender: FDA-Public Use
  Company Number: TCI2011A04784

PATIENT
  Age: 49 Year
  Sex: Female

DRUGS (5)
  1. ALDACTONE A (SPIRONOLACTONE FUROSEMIDE) [Concomitant]
  2. LANSOPRAZOLE [Suspect]
     Indication: GASTROOESOPHAGEAL REFLUX DISEASE
     Dosage: 15 MG (15 MG, 1 IN 1 D) PER ORAL
     Route: 048
     Dates: end: 20101208
  3. FUROSEMIDE [Concomitant]
  4. PHENYTOIN [Suspect]
     Dosage: PER ORAL
     Route: 048
     Dates: end: 20101208
  5. SEROQUEL [Suspect]
     Dosage: PER ORAL
     Route: 048
     Dates: end: 20101207

REACTIONS (2)
  - TOXIC SKIN ERUPTION [None]
  - BLOOD COUNT ABNORMAL [None]
